FAERS Safety Report 16641960 (Version 2)
Quarter: 2023Q1

REPORT INFORMATION
  Report Type: Spontaneous
  Country: FR (occurrence: FR)
  Receive Date: 20190729
  Receipt Date: 20230322
  Transmission Date: 20230418
  Serious: Yes (Other)
  Sender: FDA-Public Use
  Company Number: None

PATIENT

DRUGS (7)
  1. IBUPROFEN\PSEUDOEPHEDRINE HYDROCHLORIDE [Suspect]
     Active Substance: IBUPROFEN\PSEUDOEPHEDRINE HYDROCHLORIDE
     Indication: Product used for unknown indication
     Dosage: UNK (NP)
     Route: 048
     Dates: start: 2012, end: 201803
  2. ACETAMINOPHEN\PSEUDOEPHEDRINE HYDROCHLORIDE [Suspect]
     Active Substance: ACETAMINOPHEN\PSEUDOEPHEDRINE HYDROCHLORIDE
     Indication: Product used for unknown indication
     Dosage: UNK (NP)
     Route: 048
     Dates: start: 2012, end: 201803
  3. MEPHENESIN\METHYL NICOTINATE [Suspect]
     Active Substance: MEPHENESIN\METHYL NICOTINATE
     Indication: Product used for unknown indication
     Dosage: UNK (NP)
     Route: 048
     Dates: start: 2012, end: 201803
  4. METHOCARBAMOL [Suspect]
     Active Substance: METHOCARBAMOL
     Indication: Product used for unknown indication
     Dosage: UNK (NP)
     Route: 048
     Dates: start: 2012, end: 201803
  5. TRAMADOL [Suspect]
     Active Substance: TRAMADOL
     Indication: Product used for unknown indication
     Dosage: UNK (NP)
     Route: 048
     Dates: start: 2012, end: 201803
  6. ACETAMINOPHEN\ASCORBIC ACID\PHENIRAMINE MALEATE [Suspect]
     Active Substance: ACETAMINOPHEN\ASCORBIC ACID\PHENIRAMINE MALEATE
     Indication: Product used for unknown indication
     Dosage: UNK (NP)
     Route: 048
     Dates: start: 2012, end: 201803
  7. CODEINE [Suspect]
     Active Substance: CODEINE
     Indication: Product used for unknown indication
     Dosage: 600 MG, QD
     Route: 048
     Dates: start: 2012, end: 201803

REACTIONS (2)
  - Dependence [Recovered/Resolved]
  - Drug abuse [Recovered/Resolved]

NARRATIVE: CASE EVENT DATE: 20120101
